FAERS Safety Report 6368967-2 (Version None)
Quarter: 2009Q3

REPORT INFORMATION
  Report Type: 
  Country: None (occurrence: None)
  Receive Date: 20090922
  Receipt Date: 20090916
  Transmission Date: 20100115
  Serious: Yes (Death, Hospitalization, Other)
  Sender: FDA-Public Use
  Company Number: KR-ELI_LILLY_AND_COMPANY-KR200909003490

PATIENT
  Age: 51 Year
  Sex: Male

DRUGS (2)
  1. HUMALOG MIX 75/25 [Suspect]
     Indication: TYPE 2 DIABETES MELLITUS
     Dosage: 66 IU, DAILY (1/D)
     Route: 058
     Dates: start: 20090801, end: 20090904
  2. HUMALOG MIX 75/25 [Suspect]
     Dosage: 90 IU, DAILY (1/D)
     Route: 058
     Dates: start: 20090905

REACTIONS (7)
  - ASCITES [None]
  - BLOOD GLUCOSE INCREASED [None]
  - CARDIAC FAILURE [None]
  - DEATH [None]
  - DYSPNOEA [None]
  - FALL [None]
  - LOSS OF CONSCIOUSNESS [None]
